FAERS Safety Report 7906310-5 (Version None)
Quarter: 2011Q4

REPORT INFORMATION
  Report Type: 
  Country: None (occurrence: None)
  Receive Date: 20111110
  Receipt Date: 20111109
  Transmission Date: 20120403
  Serious: Yes (Death, Other)
  Sender: FDA-Public Use
  Company Number: US-ABBOTT-11P-163-0836720-00

PATIENT
  Sex: Male
  Weight: 81 kg

DRUGS (6)
  1. RANITIDINE [Concomitant]
     Indication: PRODUCT USED FOR UNKNOWN INDICATION
  2. HYDROCODONE BITARTRATE [Suspect]
     Indication: ARTHRALGIA
  3. SELIDIPINE [Concomitant]
     Indication: PRODUCT USED FOR UNKNOWN INDICATION
  4. FLOMAX [Concomitant]
     Indication: PRODUCT USED FOR UNKNOWN INDICATION
  5. LIPITOR [Concomitant]
     Indication: PRODUCT USED FOR UNKNOWN INDICATION
  6. LUPRON DEPOT [Suspect]
     Indication: PROSTATE CANCER
     Dosage: PATIENT RECEIVED 1ST DOSE ONLY
     Route: 030
     Dates: start: 20101105, end: 20101105

REACTIONS (6)
  - INTENTIONAL SELF-INJURY [None]
  - GUN SHOT WOUND [None]
  - SUICIDAL IDEATION [None]
  - DRUG ABUSE [None]
  - COMPLETED SUICIDE [None]
  - PROSTATE CANCER [None]
